FAERS Safety Report 20825460 (Version 2)
Quarter: 2022Q2

REPORT INFORMATION
  Report Type: Spontaneous
  Country: US (occurrence: US)
  Receive Date: 20220513
  Receipt Date: 20220523
  Transmission Date: 20220721
  Serious: Yes (Other)
  Sender: FDA-Public Use
  Company Number: US-SA-SAC20220510001660

PATIENT
  Age: 62 Year
  Sex: Male

DRUGS (3)
  1. AUBAGIO [Suspect]
     Active Substance: TERIFLUNOMIDE
     Indication: Multiple sclerosis
     Route: 048
  2. VUMERITY [Concomitant]
     Active Substance: DIROXIMEL FUMARATE
  3. MAYZENT [Concomitant]
     Active Substance: SIPONIMOD
     Dosage: UNK
     Dates: start: 202201

REACTIONS (3)
  - Myocardial infarction [Unknown]
  - Abdominal discomfort [Unknown]
  - Pain in extremity [Unknown]
